FAERS Safety Report 13839177 (Version 1)
Quarter: 2017Q3

REPORT INFORMATION
  Report Type: Spontaneous
  Country: US (occurrence: US)
  Receive Date: 20170806
  Receipt Date: 20170806
  Transmission Date: 20171127
  Serious: Yes (Death)
  Sender: FDA-Public Use
  Company Number: None

PATIENT
  Age: 79 Year
  Sex: Male
  Weight: 76.5 kg

DRUGS (1)
  1. LYRICA [Suspect]
     Active Substance: PREGABALIN

REACTIONS (5)
  - Hallucination [None]
  - Death of relative [None]
  - Drug withdrawal syndrome [None]
  - Dysphagia [None]
  - Asthenia [None]

NARRATIVE: CASE EVENT DATE: 20170712
